FAERS Safety Report 23309306 (Version 5)
Quarter: 2024Q4

REPORT INFORMATION
  Report Type: Spontaneous
  Country: US (occurrence: US)
  Receive Date: 20231218
  Receipt Date: 20241118
  Transmission Date: 20250115
  Serious: Yes (Other)
  Sender: PFIZER
  Company Number: US-PFIZER INC-PV202300202181

PATIENT
  Age: 85 Year
  Sex: Female
  Weight: 48.526 kg

DRUGS (5)
  1. IBRANCE [Suspect]
     Active Substance: PALBOCICLIB
     Indication: Breast cancer female
     Dosage: 125 MG, TAKE 1 TABLET BY ORAL ROUTE DAILY
     Route: 048
  2. IBRANCE [Suspect]
     Active Substance: PALBOCICLIB
     Dosage: 125 MG, CYCLIC (1 TAB ONCE DAILY ON DAYS 1-21 OF 28 DAY CYCLE)
     Route: 048
     Dates: start: 20180502
  3. IBRANCE [Suspect]
     Active Substance: PALBOCICLIB
     Dosage: 125 MG, CYCLIC: ONE TABLET FOR 21 DAYS AND OFF 7
     Route: 048
  4. ANASTROZOLE [Suspect]
     Active Substance: ANASTROZOLE
     Dosage: UNK
     Dates: start: 20180405
  5. ANASTROZOLE [Suspect]
     Active Substance: ANASTROZOLE
     Dosage: UNK
     Dates: start: 20190529

REACTIONS (6)
  - Leukopenia [Unknown]
  - Epistaxis [Unknown]
  - Hot flush [Unknown]
  - Bone pain [Unknown]
  - Lacrimation increased [Unknown]
  - Temperature intolerance [Unknown]
